FAERS Safety Report 4643577-3 (Version None)
Quarter: 2005Q2

REPORT INFORMATION
  Report Type: 
  Country: None (occurrence: None)
  Receive Date: 20050425
  Receipt Date: 20040218
  Transmission Date: 20051028
  Serious: Yes (Other)
  Sender: FDA-Public Use
  Company Number: ZA-BOEHRINGER INGELHEIM PHARMACEUTICALS, INC.-2004-DE-00832ZA

PATIENT
  Age: 35 Year
  Sex: Female

DRUGS (7)
  1. NEVIRAPINE [Suspect]
     Indication: HIV INFECTION
     Route: 048
     Dates: start: 19991011, end: 19991025
  2. NEVIRAPINE [Suspect]
     Route: 048
     Dates: start: 19991025, end: 20000918
  3. NEVIRAPINE [Suspect]
     Route: 048
     Dates: start: 20001012
  4. LAMIVUDINE [Suspect]
     Indication: HIV INFECTION
     Route: 048
     Dates: start: 19991011, end: 20000918
  5. LAMIVUDINE [Suspect]
     Route: 048
     Dates: start: 20001012
  6. STAVUDINE [Suspect]
     Indication: HIV INFECTION
     Route: 048
     Dates: start: 19991011, end: 20000918
  7. STAVUDINE [Suspect]
     Route: 048
     Dates: start: 20001012

REACTIONS (3)
  - ABORTION INDUCED [None]
  - DRUG EXPOSURE DURING PREGNANCY [None]
  - PREGNANCY [None]
